FAERS Safety Report 12086175 (Version 2)
Quarter: 2019Q4

REPORT INFORMATION
  Report Type: Spontaneous
  Country: CA (occurrence: CA)
  Receive Date: 20160217
  Receipt Date: 20191021
  Transmission Date: 20200122
  Serious: Yes (Hospitalization)
  Sender: FDA-Public Use
  Company Number: CA-TEVA-635528ACC

PATIENT
  Age: 28 Year
  Sex: Female
  Weight: 64 kg

DRUGS (3)
  1. PANTOPRAZOLE [Suspect]
     Active Substance: PANTOPRAZOLE
     Indication: GASTROOESOPHAGEAL REFLUX DISEASE
     Route: 048
  2. PREGVIT [Concomitant]
  3. CENTRUM MATERNA [Concomitant]
     Active Substance: MINERALS\VITAMINS

REACTIONS (8)
  - Abdominal pain [Unknown]
  - Lip swelling [Unknown]
  - Pruritus [Unknown]
  - Maternal exposure during pregnancy [Unknown]
  - Expired product administered [Unknown]
  - Hypotension [Unknown]
  - Swollen tongue [Unknown]
  - Asthenia [Unknown]
